FAERS Safety Report 4505433-0 (Version None)
Quarter: 2004Q4

REPORT INFORMATION
  Report Type: 
  Country: None (occurrence: None)
  Receive Date: 20041018
  Receipt Date: 20040803
  Transmission Date: 20050328
  Serious: Yes (Other)
  Sender: FDA-Public Use
  Company Number: 208239

PATIENT
  Age: 42 Year
  Sex: Male
  Weight: 102.9 kg

DRUGS (1)
  1. XOLAIR [Suspect]
     Indication: ASTHMA
     Dosage: 450 MG Q4W SUBCUTANEOUS
     Route: 058
     Dates: start: 20040310, end: 20040602

REACTIONS (1)
  - PROSTATE CANCER [None]
